FAERS Safety Report 23471648 (Version 1)
Quarter: 2024Q1

REPORT INFORMATION
  Report Type: Spontaneous
  Country: US (occurrence: None)
  Receive Date: 20240202
  Receipt Date: 20240202
  Transmission Date: 20240410
  Serious: Yes (Hospitalization)
  Sender: FDA-Public Use
  Company Number: None

PATIENT
  Sex: Female

DRUGS (45)
  1. TADALAFIL [Suspect]
     Active Substance: TADALAFIL
     Indication: Pulmonary hypertension
     Dosage: FREQUENCY : DAILY;?
     Route: 048
     Dates: start: 20210616
  2. ALBUTEROL AER HFA [Concomitant]
  3. ALBUTEROL NEB 0.083% [Concomitant]
  4. ALPRAZOLAM [Concomitant]
     Active Substance: ALPRAZOLAM
  5. AMLODIPINE [Concomitant]
     Active Substance: AMLODIPINE BESYLATE
  6. AMLODIPINE [Concomitant]
     Active Substance: AMLODIPINE BESYLATE
  7. ACETAMINOPHEN\CODEINE PHOSPHATE [Concomitant]
     Active Substance: ACETAMINOPHEN\CODEINE PHOSPHATE
  8. ASPIRIN LOW EC [Concomitant]
  9. ATORVASTATIN [Concomitant]
     Active Substance: ATORVASTATIN
  10. AZITHROMYCIN [Concomitant]
     Active Substance: AZITHROMYCIN
  11. BASAGLAR [Concomitant]
     Active Substance: INSULIN GLARGINE
  12. CARVEDILOL [Concomitant]
     Active Substance: CARVEDILOL
  13. CARVEDILOL [Concomitant]
     Active Substance: CARVEDILOL
  14. DILTIAZEM [Concomitant]
     Active Substance: DILTIAZEM
  15. EFFEXOR [Concomitant]
     Active Substance: VENLAFAXINE HYDROCHLORIDE
  16. EZETIMIBE [Concomitant]
     Active Substance: EZETIMIBE
  17. FLUCONAZOLE [Concomitant]
     Active Substance: FLUCONAZOLE
  18. FLUCONAZOLE [Concomitant]
     Active Substance: FLUCONAZOLE
  19. FUROSEMIDE [Concomitant]
     Active Substance: FUROSEMIDE
  20. GABAPENTIN [Concomitant]
     Active Substance: GABAPENTIN
  21. GABAPENTIN [Concomitant]
     Active Substance: GABAPENTIN
  22. HYDROCHLOROTHIAZIDE [Concomitant]
     Active Substance: HYDROCHLOROTHIAZIDE
  23. IBUPROFEN [Concomitant]
     Active Substance: IBUPROFEN
  24. JARDIANCE [Concomitant]
     Active Substance: EMPAGLIFLOZIN
  25. KLOR-CON MEQ ER [Concomitant]
  26. LIPITOR [Concomitant]
     Active Substance: ATORVASTATIN CALCIUM
  27. MAGNESIUM [Concomitant]
     Active Substance: MAGNESIUM
  28. MELOXICAM [Concomitant]
     Active Substance: MELOXICAM
  29. METAXALONE [Concomitant]
     Active Substance: METAXALONE
  30. METHOCARBAMOL [Concomitant]
     Active Substance: METHOCARBAMOL
  31. NICOTINE TD DIS [Concomitant]
  32. OMEPRAZOLE [Concomitant]
     Active Substance: OMEPRAZOLE
  33. ONDANSETRON [Concomitant]
     Active Substance: ONDANSETRON
  34. POTASSIUM POW CHLORIDE [Concomitant]
  35. TORSEMIDE [Concomitant]
     Active Substance: TORSEMIDE
  36. TORSEMIDE [Concomitant]
     Active Substance: TORSEMIDE
  37. TRAMADOL HCL [Concomitant]
     Active Substance: TRAMADOL HYDROCHLORIDE
  38. TRELEGE AER ELLIPTA [Concomitant]
  39. TRULICITY [Concomitant]
     Active Substance: DULAGLUTIDE
  40. VALACYCLOVIR [Concomitant]
     Active Substance: VALACYCLOVIR HYDROCHLORIDE
  41. VALTREX [Concomitant]
     Active Substance: VALACYCLOVIR HYDROCHLORIDE
  42. VENLAFAXINE HYDROCHLORIDE [Concomitant]
     Active Substance: VENLAFAXINE HYDROCHLORIDE
  43. VITAMIN D [Concomitant]
     Active Substance: VITAMIN D NOS
  44. VITAMIN D3 [Concomitant]
     Active Substance: CHOLECALCIFEROL
  45. XANAX [Concomitant]
     Active Substance: ALPRAZOLAM

REACTIONS (3)
  - Peripheral swelling [None]
  - Peripheral swelling [None]
  - Dyspnoea [None]
